FAERS Safety Report 12812588 (Version 1)
Quarter: 2016Q4

REPORT INFORMATION
  Report Type: Spontaneous
  Country: GB (occurrence: GB)
  Receive Date: 20161005
  Receipt Date: 20161005
  Transmission Date: 20170207
  Serious: Yes (Other)
  Sender: FDA-Public Use
  Company Number: GB-TEVA-697647ACC

PATIENT
  Age: 81 Year
  Sex: Female
  Weight: 65 kg

DRUGS (1)
  1. ACTAVIS UK PREDNISOLONE [Suspect]
     Active Substance: PREDNISOLONE
     Dosage: 60 MG ONCE A DAY IN THE MORNING FOR 5 WEEKS, THEN 50 MG FOR 7 DAYS, 40 MG FOR 7 DAYS, 30 MG FOR 7 DA
     Dates: start: 20160714

REACTIONS (9)
  - Rash pruritic [Not Recovered/Not Resolved]
  - Gait disturbance [Not Recovered/Not Resolved]
  - Arthralgia [Not Recovered/Not Resolved]
  - Muscular weakness [Not Recovered/Not Resolved]
  - Angina pectoris [Not Recovered/Not Resolved]
  - Incontinence [Not Recovered/Not Resolved]
  - Back pain [Not Recovered/Not Resolved]
  - Fracture [Unknown]
  - Sleep disorder [Not Recovered/Not Resolved]

NARRATIVE: CASE EVENT DATE: 20160715
